FAERS Safety Report 7008345-6 (Version None)
Quarter: 2010Q3

REPORT INFORMATION
  Report Type: 
  Country: None (occurrence: None)
  Receive Date: 20100922
  Receipt Date: 20100916
  Transmission Date: 20110219
  Serious: Yes (Hospitalization)
  Sender: FDA-Public Use
  Company Number: A0882324A

PATIENT
  Age: 45 Year
  Sex: Female

DRUGS (1)
  1. AVANDIA [Suspect]
     Indication: DIABETES MELLITUS
     Route: 048

REACTIONS (5)
  - ARTHROPATHY [None]
  - ATRIOVENTRICULAR BLOCK [None]
  - CHEST PAIN [None]
  - GASTRIC DISORDER [None]
  - MUSCULOSKELETAL DISORDER [None]
